FAERS Safety Report 8286728-4 (Version None)
Quarter: 2012Q2

REPORT INFORMATION
  Report Type: 
  Country: None (occurrence: None)
  Receive Date: 20120416
  Receipt Date: 20120413
  Transmission Date: 20120825
  Serious: No
  Sender: FDA-Public Use
  Company Number: US-B.I. PHARMACEUTICALS,INC./RIDGEFIELD-2012-BP-05781BP

PATIENT
  Age: 82 Year

DRUGS (3)
  1. PRADAXA [Suspect]
     Indication: ATRIAL FIBRILLATION
     Dosage: 150 MG
     Route: 048
     Dates: start: 20110713, end: 20110718
  2. ATENOLOL [Concomitant]
     Indication: ATRIAL FIBRILLATION
  3. THYROID TAB [Concomitant]
     Indication: HYPOTHYROIDISM
     Dosage: 50 MCG

REACTIONS (1)
  - SWELLING FACE [None]
